FAERS Safety Report 4637654-0 (Version None)
Quarter: 2005Q2

REPORT INFORMATION
  Report Type: 
  Country: None (occurrence: None)
  Receive Date: 20050418
  Receipt Date: 20050407
  Transmission Date: 20051028
  Serious: Yes (Hospitalization)
  Sender: FDA-Public Use
  Company Number: SE-GLAXOSMITHKLINE-B0377984A

PATIENT
  Age: 64 Year
  Sex: Female

DRUGS (4)
  1. MALARONE [Suspect]
     Indication: PROPHYLAXIS
     Dosage: 1TAB PER DAY
     Route: 048
     Dates: start: 20050201, end: 20050205
  2. COZAAR [Concomitant]
     Route: 065
  3. ACETYLCYSTEINE [Concomitant]
     Route: 065
  4. SEREVENT [Concomitant]
     Route: 055

REACTIONS (4)
  - CHILLS [None]
  - LEUKOPENIA [None]
  - PYREXIA [None]
  - RASH [None]
